FAERS Safety Report 22400930 (Version 1)
Quarter: 2023Q2

REPORT INFORMATION
  Report Type: Spontaneous
  Country: GB (occurrence: GB)
  Receive Date: 20230602
  Receipt Date: 20230602
  Transmission Date: 20230722
  Serious: Yes (Hospitalization, Other)
  Sender: FDA-Public Use
  Company Number: GB-GILEAD-2023-0630786

PATIENT
  Age: 43 Year
  Sex: Female

DRUGS (1)
  1. YESCARTA [Suspect]
     Active Substance: AXICABTAGENE CILOLEUCEL
     Indication: Follicular lymphoma
     Route: 042

REACTIONS (5)
  - Cytomegalovirus infection reactivation [Unknown]
  - Cytokine release syndrome [Recovering/Resolving]
  - Cognitive disorder [Recovering/Resolving]
  - White blood cell count increased [Recovering/Resolving]
  - Protein total increased [Recovering/Resolving]
